FAERS Safety Report 7590274-0 (Version None)
Quarter: 2011Q2

REPORT INFORMATION
  Report Type: 
  Country: None (occurrence: None)
  Receive Date: 20110627
  Receipt Date: 20110613
  Transmission Date: 20111010
  Serious: Yes (Hospitalization)
  Sender: FDA-Public Use
  Company Number: 2011P1007127

PATIENT
  Age: 50 Year
  Sex: Male

DRUGS (8)
  1. PHENERGAN HCL [Concomitant]
  2. VICODIN [Concomitant]
  3. LOPRESSOR [Concomitant]
  4. WARFARIN SODIUM [Suspect]
     Dosage: 20MG, X1, PO; 10 MG, X1, PO; 22 MG, X1, PO; PO;
     Route: 047
     Dates: start: 20110613
  5. WARFARIN SODIUM [Suspect]
     Dosage: 20MG, X1, PO; 10 MG, X1, PO; 22 MG, X1, PO; PO;
     Route: 047
     Dates: start: 20110610, end: 20110610
  6. WARFARIN SODIUM [Suspect]
     Dosage: 20MG, X1, PO; 10 MG, X1, PO; 22 MG, X1, PO; PO;
     Route: 047
     Dates: start: 20110611, end: 20110611
  7. WARFARIN SODIUM [Suspect]
     Dosage: 20MG, X1, PO; 10 MG, X1, PO; 22 MG, X1, PO; PO;
     Route: 047
     Dates: start: 20110612, end: 20110612
  8. NITROGLYCERIN [Concomitant]

REACTIONS (1)
  - NO THERAPEUTIC RESPONSE [None]
